FAERS Safety Report 14182762 (Version 2)
Quarter: 2017Q4

REPORT INFORMATION
  Report Type: Spontaneous
  Country: US (occurrence: US)
  Receive Date: 20171113
  Receipt Date: 20171128
  Transmission Date: 20180321
  Serious: Yes (Other)
  Sender: FDA-Public Use
  Company Number: US-LPDUSPRD-20171513

PATIENT
  Age: 55 Year
  Sex: Female

DRUGS (4)
  1. LIDOCAINE 2 % [Suspect]
     Active Substance: LIDOCAINE
     Dosage: 1 CC
     Route: 065
     Dates: start: 20170922
  2. PREMARIN [Concomitant]
     Active Substance: ESTROGENS, CONJUGATED
     Dosage: UNKNOWN
     Route: 065
  3. BETAMETHASONE SODIUM PHOSPHATE AND BETAMETHASONE ACETATE INJ SUSP, USP [Suspect]
     Active Substance: BETAMETHASONE ACETATE\BETAMETHASONE SODIUM PHOSPHATE
     Dosage: 0.5 ML
     Route: 065
     Dates: start: 20170922, end: 20170922
  4. LINZESS [Concomitant]
     Active Substance: LINACLOTIDE
     Dosage: UNKNOWN
     Route: 065

REACTIONS (2)
  - Localised infection [Unknown]
  - Off label use [Unknown]

NARRATIVE: CASE EVENT DATE: 20170929
